FAERS Safety Report 14423542 (Version 6)
Quarter: 2021Q1

REPORT INFORMATION
  Report Type: Spontaneous
  Country: US (occurrence: US)
  Receive Date: 20180123
  Receipt Date: 20210309
  Transmission Date: 20210419
  Serious: No
  Sender: FDA-Public Use
  Company Number: US-PFIZER INC-2018028279

PATIENT
  Age: 6 Year
  Sex: Female

DRUGS (5)
  1. GENOTROPIN [Suspect]
     Active Substance: SOMATROPIN
     Indication: SILVER-RUSSELL SYNDROME
     Dosage: 0.9 MG, 6 DAYS PER WEEK
     Dates: start: 20060617
  2. GENOTROPIN [Suspect]
     Active Substance: SOMATROPIN
     Dosage: 0.6 MG, 6 DAYS PER WEEK
     Route: 058
     Dates: start: 201607
  3. GENOTROPIN [Suspect]
     Active Substance: SOMATROPIN
     Dosage: 0.9 MG, 6 DAYS PER WEEK
     Dates: start: 20160720
  4. GENOTROPIN [Suspect]
     Active Substance: SOMATROPIN
     Dosage: 1.4 MG 7 DAYS PER WEEK
     Dates: start: 20160617
  5. GENOTROPIN [Suspect]
     Active Substance: SOMATROPIN
     Indication: SHORT STATURE
     Dosage: 1.4 MG, 6 DAYS A WEEK
     Dates: start: 201606

REACTIONS (4)
  - Drug hypersensitivity [Unknown]
  - Pruritus [Unknown]
  - Drug dose omission by device [Unknown]
  - Device issue [Unknown]
